FAERS Safety Report 24695613 (Version 1)
Quarter: 2024Q4

REPORT INFORMATION
  Report Type: Report from Study
  Country: US (occurrence: US)
  Receive Date: 20241204
  Receipt Date: 20241204
  Transmission Date: 20250115
  Serious: Yes (Other)
  Sender: STALLERGENES
  Company Number: US-AIMMUNE THERAPEUTICS, INC.-2024AIMT00400

PATIENT
  Age: 18 Year
  Sex: Female

DRUGS (3)
  1. PALFORZIA [Suspect]
     Active Substance: PEANUT
     Indication: Food allergy
     Dosage: IDE (0.5MG-6MG),  ONCE
     Dates: start: 20231003, end: 20231003
  2. PALFORZIA [Suspect]
     Active Substance: PEANUT
     Dosage: 240 MG, 1X/DAY
     Dates: start: 20240305, end: 20240309
  3. PALFORZIA [Suspect]
     Active Substance: PEANUT
     Dosage: 240 MG, ONCE, LAST DOSE PRIOR TO EVENTS
     Dates: start: 20240309, end: 20240309

REACTIONS (7)
  - Anaphylactic reaction [Recovered/Resolved]
  - Urticaria [Recovered/Resolved]
  - Abdominal pain [Recovered/Resolved]
  - Nausea [Recovered/Resolved]
  - Vomiting [Recovered/Resolved]
  - Dysphonia [Recovered/Resolved]
  - Alcohol use [Recovered/Resolved]

NARRATIVE: CASE EVENT DATE: 20240309
